FAERS Safety Report 8240407-8 (Version None)
Quarter: 2012Q1

REPORT INFORMATION
  Report Type: 
  Country: None (occurrence: None)
  Receive Date: 20120313
  Receipt Date: 20110629
  Transmission Date: 20120608
  Serious: Yes (Other)
  Sender: FDA-Public Use
  Company Number: 331116

PATIENT
  Sex: Female

DRUGS (2)
  1. NOVOSEVEN [Suspect]
     Indication: FACTOR VII DEFICIENCY
     Dosage: UNK, SUBCUTANEOUS
     Route: 058
  2. AMICAR [Concomitant]

REACTIONS (1)
  - DEEP VEIN THROMBOSIS [None]
